FAERS Safety Report 24429432 (Version 1)
Quarter: 2024Q4

REPORT INFORMATION
  Report Type: Other
  Country: US (occurrence: US)
  Receive Date: 20241011
  Receipt Date: 20241011
  Transmission Date: 20250115
  Serious: Yes (Hospitalization, Other)
  Sender: BIONPHARMA
  Company Number: US-Bion-014059

PATIENT
  Age: 38 Year
  Sex: Male

DRUGS (5)
  1. CLOBAZAM [Suspect]
     Active Substance: CLOBAZAM
     Indication: Lennox-Gastaut syndrome
  2. VALPROIC ACID [Suspect]
     Active Substance: VALPROIC ACID
     Indication: Angelman^s syndrome
  3. LACOSAMIDE [Concomitant]
     Active Substance: LACOSAMIDE
     Indication: Lennox-Gastaut syndrome
  4. LEVETIRACETAM [Concomitant]
     Active Substance: LEVETIRACETAM
     Indication: Angelman^s syndrome
  5. LEVOCARNITINE [Concomitant]
     Active Substance: LEVOCARNITINE
     Indication: Angelman^s syndrome

REACTIONS (2)
  - Hyperammonaemia [Recovered/Resolved]
  - Metabolic encephalopathy [Recovered/Resolved]
